FAERS Safety Report 8525908-7 (Version None)
Quarter: 2012Q3

REPORT INFORMATION
  Report Type: 
  Country: None (occurrence: None)
  Receive Date: 20120720
  Receipt Date: 20120719
  Transmission Date: 20120928
  Serious: Yes (Other)
  Sender: FDA-Public Use
  Company Number: PHHO2012US010669

PATIENT
  Age: 71 Year
  Sex: Female
  Weight: 105.69 kg

DRUGS (17)
  1. CHLORZOXAZONE [Concomitant]
  2. ZOLEDRONOC ACID [Suspect]
     Indication: BREAST CANCER
     Dosage: 4 MG, UNK
     Dates: start: 20090507, end: 20111007
  3. ULTRAM [Concomitant]
  4. CALCIUM W/VITAMIN D NOS [Concomitant]
  5. COMBIGAN [Concomitant]
  6. CYMBALTA [Concomitant]
  7. ASCORBIC ACID [Concomitant]
  8. MULTI-VITAMINS [Concomitant]
  9. ARIMIDEX [Concomitant]
  10. CHLORHEXIDINE GLUCONATE [Concomitant]
  11. AMLODIPINE [Concomitant]
  12. FISH OIL [Concomitant]
  13. EZETIMIBE [Concomitant]
  14. DICLOFENAC [Concomitant]
  15. LISINOPRIL [Concomitant]
  16. TRAVATAN [Concomitant]
  17. HIGH FIBER DIET [Concomitant]

REACTIONS (1)
  - OSTEONECROSIS OF JAW [None]
